FAERS Safety Report 17677018 (Version 1)
Quarter: 2020Q2

REPORT INFORMATION
  Report Type: Spontaneous
  Country: FR (occurrence: FR)
  Receive Date: 20200416
  Receipt Date: 20200416
  Transmission Date: 20200714
  Serious: Yes (Death)
  Sender: FDA-Public Use
  Company Number: FR-MYLANLABS-2020M1037843

PATIENT
  Age: 6 Year
  Sex: Female

DRUGS (3)
  1. ETOPOSIDE. [Suspect]
     Active Substance: ETOPOSIDE
     Indication: NEPHROBLASTOMA
     Dosage: 1800 MG/M2
  2. MELPHALAN. [Suspect]
     Active Substance: MELPHALAN
     Indication: NEPHROBLASTOMA
     Dosage: 140 MG/M2
  3. THIOTEPA. [Suspect]
     Active Substance: THIOTEPA
     Indication: NEPHROBLASTOMA
     Dosage: 720 MG/M2

REACTIONS (2)
  - Toxicity to various agents [Fatal]
  - Infection [Fatal]
